FAERS Safety Report 7242163-9 (Version None)
Quarter: 2011Q1

REPORT INFORMATION
  Report Type: 
  Country: None (occurrence: None)
  Receive Date: 20110124
  Receipt Date: 20110105
  Transmission Date: 20110831
  Serious: Yes (Other)
  Sender: FDA-Public Use
  Company Number: PHEH2006US06679

PATIENT
  Sex: Female
  Weight: 90.703 kg

DRUGS (15)
  1. MEDROXYPROGESTERONE [Suspect]
     Dosage: UNK
  2. CYANOCOBALAMIN [Concomitant]
  3. ESTRADERM [Suspect]
     Indication: MENOPAUSE
     Dosage: 0.1 MG
     Route: 062
     Dates: start: 19870101, end: 20040801
  4. WELLBUTRIN [Concomitant]
  5. ZITHROMAX [Concomitant]
  6. TUSSI-ORGANIDIN DM NR [Concomitant]
  7. METRONIDAZOLE [Concomitant]
  8. COMBIPATCH [Suspect]
     Indication: MENOPAUSE
     Route: 062
  9. PROVERA [Suspect]
     Indication: MENOPAUSE
     Dosage: 2.5 MG
     Dates: start: 19950101, end: 19970101
  10. ESTROGENS [Concomitant]
  11. ZOLOFT [Concomitant]
  12. VALTREX [Concomitant]
  13. CLIMARA [Suspect]
  14. FEMARA [Suspect]
     Dosage: UNK
     Dates: start: 20051207
  15. PAXIL [Concomitant]

REACTIONS (55)
  - SMEAR CERVIX ABNORMAL [None]
  - FEBRILE NEUTROPENIA [None]
  - DIVERTICULUM [None]
  - CYSTOCELE [None]
  - ANXIETY [None]
  - SYNCOPE [None]
  - HELICOBACTER GASTRITIS [None]
  - SEBORRHOEIC DERMATITIS [None]
  - VULVOVAGINAL MYCOTIC INFECTION [None]
  - FATIGUE [None]
  - BRONCHITIS [None]
  - CERVICITIS [None]
  - EXOSTOSIS [None]
  - VITAMIN B12 DEFICIENCY [None]
  - HOT FLUSH [None]
  - ATROPHIC VULVOVAGINITIS [None]
  - COLONIC POLYP [None]
  - SUPRAVENTRICULAR EXTRASYSTOLES [None]
  - BIOPSY BREAST [None]
  - CHEST PAIN [None]
  - CONSTIPATION [None]
  - HYPERLIPIDAEMIA [None]
  - POST-TRAUMATIC STRESS DISORDER [None]
  - CONTUSION [None]
  - ARTHRALGIA [None]
  - PAIN IN EXTREMITY [None]
  - CHOLECYSTITIS [None]
  - BREAST CANCER [None]
  - MAMMOGRAM ABNORMAL [None]
  - URINARY INCONTINENCE [None]
  - DYSPEPSIA [None]
  - UPPER RESPIRATORY TRACT INFECTION [None]
  - ADVERSE DRUG REACTION [None]
  - LYMPHADENITIS [None]
  - FOLLICULITIS [None]
  - PARAESTHESIA [None]
  - VENTRICULAR EXTRASYSTOLES [None]
  - ARTHRITIS [None]
  - SLEEP DISORDER [None]
  - RASH [None]
  - NODULE [None]
  - HIRSUTISM [None]
  - BREAST CALCIFICATIONS [None]
  - BLEPHARITIS [None]
  - URTICARIA [None]
  - CONJUNCTIVITIS ALLERGIC [None]
  - ACUTE SINUSITIS [None]
  - ABDOMINAL PAIN UPPER [None]
  - AUTONOMIC NERVOUS SYSTEM IMBALANCE [None]
  - VAGINAL HAEMORRHAGE [None]
  - BACK PAIN [None]
  - DYSPNOEA EXERTIONAL [None]
  - HYPERTENSION [None]
  - BUNION [None]
  - CARDIAC MURMUR [None]
